FAERS Safety Report 19145393 (Version 1)
Quarter: 2021Q2

REPORT INFORMATION
  Report Type: Spontaneous
  Country: SE (occurrence: SE)
  Receive Date: 20210416
  Receipt Date: 20210416
  Transmission Date: 20210717
  Serious: Yes (Life-Threatening, Other)
  Sender: FDA-Public Use
  Company Number: SE-CELLTRION INC.-2021SE004871

PATIENT

DRUGS (5)
  1. CLOFARABINE. [Suspect]
     Active Substance: CLOFARABINE
     Indication: ALLOGENIC STEM CELL TRANSPLANTATION
     Dosage: 200 MG/M2
  2. THIOTEPA. [Suspect]
     Active Substance: THIOTEPA
     Indication: ALLOGENIC STEM CELL TRANSPLANTATION
     Dosage: 10 MG/KG
  3. ATG?FRESENIUS [Suspect]
     Active Substance: LAPINE T-LYMPHOCYTE IMMUNE GLOBULIN
     Indication: ALLOGENIC STEM CELL TRANSPLANTATION
     Dosage: 30 MG/KG FROM DAY ?12 TO DAY ?10
  4. RITUXIMAB (UNKNOWN) [Suspect]
     Active Substance: RITUXIMAB
     Indication: IMMUNOSUPPRESSANT DRUG THERAPY
     Dosage: SINGLE DOSE (375 MG/M2) ON DAY+1
  5. MELPHALAN. [Suspect]
     Active Substance: MELPHALAN
     Indication: ALLOGENIC STEM CELL TRANSPLANTATION
     Dosage: 120 MG/M2

REACTIONS (6)
  - Thrombocytopenia [Unknown]
  - Viral infection [Unknown]
  - Neutropenia [Unknown]
  - Pyrexia [Unknown]
  - Pancytopenia [Unknown]
  - Off label use [Unknown]
